FAERS Safety Report 5874371-3 (Version None)
Quarter: 2008Q3

REPORT INFORMATION
  Report Type: 
  Country: None (occurrence: None)
  Receive Date: 20080908
  Receipt Date: 20080827
  Transmission Date: 20090109
  Serious: Yes (Hospitalization, Other)
  Sender: FDA-Public Use
  Company Number: DE-GILEAD-2008-0016556

PATIENT
  Sex: Female
  Weight: 54 kg

DRUGS (5)
  1. VIREAD [Suspect]
     Route: 048
     Dates: start: 20070731, end: 20080318
  2. NEVIRAPINE [Concomitant]
     Route: 048
     Dates: start: 20070813
  3. NEVIRAPINE [Concomitant]
     Route: 048
     Dates: start: 20070725, end: 20070813
  4. DIDANOSINE [Concomitant]
     Route: 048
     Dates: start: 20080318
  5. LAMIVUDINE [Concomitant]
     Route: 048
     Dates: start: 20080318

REACTIONS (1)
  - OSTEONECROSIS [None]
